FAERS Safety Report 8766143 (Version 1)
Quarter: 2012Q4

REPORT INFORMATION
  Report Type: 
  Country: NZ (occurrence: NZ)
  Receive Date: 20120904
  Receipt Date: 20120904
  Transmission Date: 20130627
  Serious: Yes (Hospitalization)
  Sender: FDA-Public Use
  Company Number: NZ-009507513-1208NZL010371

PATIENT

DRUGS (5)
  1. FOSAMAX [Suspect]
  2. FOSAMAX PLUS D [Suspect]
     Dosage: Fosamax Plus 70/140
  3. ASPIRIN [Concomitant]
  4. PREDNISONE [Concomitant]
     Indication: MYALGIA
     Dosage: UNK
     Dates: start: 2000
  5. TRIAZOLAM [Concomitant]
     Indication: SLEEP DISORDER

REACTIONS (6)
  - None [Unknown]
  - Dyspnoea [Unknown]
  - Chest pain [Unknown]
  - Asthma [Unknown]
  - Asthma [Unknown]
  - Headache [Unknown]
